FAERS Safety Report 12727198 (Version 1)
Quarter: 2016Q3

REPORT INFORMATION
  Report Type: Spontaneous
  Country: AU (occurrence: AU)
  Receive Date: 20160909
  Receipt Date: 20160909
  Transmission Date: 20161109
  Serious: Yes (Other)
  Sender: FDA-Public Use
  Company Number: AU-BAUSCH-BL-2016-021592

PATIENT
  Age: 45 Year
  Sex: Female

DRUGS (1)
  1. ELIDEL [Suspect]
     Active Substance: PIMECROLIMUS
     Indication: DERMATITIS
     Dosage: 1 IN 1 TOTAL
     Route: 061

REACTIONS (7)
  - Eye irritation [Unknown]
  - Ocular hyperaemia [Unknown]
  - Eyelid irritation [Unknown]
  - Lacrimation increased [Unknown]
  - Eye swelling [Unknown]
  - Accidental exposure to product [Unknown]
  - Blindness transient [Unknown]
